FAERS Safety Report 6521758-1 (Version None)
Quarter: 2009Q4

REPORT INFORMATION
  Report Type: 
  Country: None (occurrence: None)
  Receive Date: 20091214
  Receipt Date: 20090730
  Transmission Date: 20100525
  Serious: Yes (Other)
  Sender: FDA-Public Use
  Company Number: 648078

PATIENT
  Age: 27 Year
  Sex: Male

DRUGS (2)
  1. PEGASYS [Suspect]
     Indication: HEPATITIS C
     Dates: start: 20080801, end: 20090401
  2. COPEGUS [Suspect]
     Indication: HEPATITIS C
     Dates: start: 20080801, end: 20090401

REACTIONS (1)
  - DEAFNESS UNILATERAL [None]
